FAERS Safety Report 6207448-3 (Version None)
Quarter: 2009Q2

REPORT INFORMATION
  Report Type: 
  Country: None (occurrence: None)
  Receive Date: 20090527
  Receipt Date: 20090527
  Transmission Date: 20091009
  Serious: Yes (Life-Threatening)
  Sender: FDA-Public Use
  Company Number: None

PATIENT
  Age: 52 Year
  Sex: Male
  Weight: 89.8122 kg

DRUGS (4)
  1. SEROQUEL [Suspect]
     Indication: ANXIETY
     Dosage: 300MG X1 DOSE PO
     Route: 048
     Dates: start: 20090107, end: 20090107
  2. SEROQUEL [Suspect]
     Indication: CONVULSION
     Dosage: 300MG X1 DOSE PO
     Route: 048
     Dates: start: 20090107, end: 20090107
  3. SEROQUEL [Suspect]
     Indication: DEPRESSION
     Dosage: 300MG X1 DOSE PO
     Route: 048
     Dates: start: 20090107, end: 20090107
  4. DIAZEPAM [Suspect]
     Dosage: 10MG X1 DOSE PO
     Route: 048
     Dates: start: 20090107, end: 20090107

REACTIONS (3)
  - BLOOD PRESSURE DECREASED [None]
  - CHEST PAIN [None]
  - HEART RATE INCREASED [None]
